FAERS Safety Report 21412964 (Version 2)
Quarter: 2022Q4

REPORT INFORMATION
  Report Type: Spontaneous
  Country: DE (occurrence: DE)
  Receive Date: 20221005
  Receipt Date: 20221021
  Transmission Date: 20230113
  Serious: Yes (Hospitalization)
  Sender: FDA-Public Use
  Company Number: DE-ADRED-07875-01

PATIENT
  Age: 88 Year
  Sex: Male
  Weight: 80 kg

DRUGS (4)
  1. RIVAROXABAN [Suspect]
     Active Substance: RIVAROXABAN
     Indication: Product used for unknown indication
     Dosage: 20 MG, QD
     Route: 048
  2. METAMIZOL [Concomitant]
     Active Substance: METAMIZOLE SODIUM
     Dosage: 500 MG, QID
  3. NALOXONE HYDROCHLORIDE\TILIDINE HYDROCHLORIDE [Concomitant]
     Active Substance: NALOXONE HYDROCHLORIDE\TILIDINE HYDROCHLORIDE
     Dosage: 1 DF, QD
  4. ACETYLCYSTEINE [Concomitant]
     Active Substance: ACETYLCYSTEINE
     Dosage: 1 DF, QD

REACTIONS (13)
  - Memory impairment [Unknown]
  - Wound [Unknown]
  - Loss of consciousness [Unknown]
  - Anaemia [Unknown]
  - Subarachnoid haemorrhage [Unknown]
  - Fall [Unknown]
  - Subdural haematoma [Unknown]
  - Fracture [Unknown]
  - Atrial fibrillation [Unknown]
  - General physical health deterioration [Unknown]
  - Renal impairment [Unknown]
  - Hyponatraemia [Unknown]
  - Musculoskeletal pain [Unknown]
